FAERS Safety Report 4440364-6 (Version None)
Quarter: 2004Q3

REPORT INFORMATION
  Report Type: 
  Country: None (occurrence: None)
  Receive Date: 20040901
  Receipt Date: 20040901
  Transmission Date: 20050211
  Serious: Yes (Other)
  Sender: FDA-Public Use
  Company Number: None

PATIENT
  Age: 57 Year
  Sex: Female
  Weight: 86.1834 kg

DRUGS (2)
  1. ADVAIR DISKUS 100/50 [Suspect]
     Indication: ASTHMA
     Dosage: 100/50 TWICE A DA RESPIRATORY
     Route: 055
     Dates: start: 20040211, end: 20040815
  2. ADVAIR DISKUS 100/50 [Suspect]
     Indication: COUGH
     Dosage: 100/50 TWICE A DA RESPIRATORY
     Route: 055
     Dates: start: 20040211, end: 20040815

REACTIONS (1)
  - MUSCLE CRAMP [None]
